FAERS Safety Report 4754169-X (Version None)
Quarter: 2005Q3

REPORT INFORMATION
  Report Type: 
  Country: None (occurrence: None)
  Receive Date: 20050826
  Receipt Date: 20010110
  Transmission Date: 20060218
  Serious: Yes (Other)
  Sender: FDA-Public Use
  Company Number: JP-ABBOTT-05P-087-0306550-00

PATIENT
  Age: 64 Year
  Sex: Male

DRUGS (12)
  1. ERYTHROCIN [Suspect]
     Indication: PNEUMONIA PRIMARY ATYPICAL
     Route: 042
     Dates: start: 20001231, end: 20010101
  2. CEFOTAXIME SODIUM [Concomitant]
     Indication: PNEUMONIA
     Route: 042
     Dates: start: 20001229, end: 20010101
  3. CEFOTAXIME SODIUM [Concomitant]
     Route: 042
     Dates: start: 20010101, end: 20010101
  4. DIPYRIDAMOLE [Concomitant]
     Indication: CARDIAC DISORDER
     Route: 048
     Dates: start: 19950301, end: 20010103
  5. ALLOPURINOL [Concomitant]
     Indication: HYPERURICAEMIA
     Route: 048
     Dates: start: 19950601, end: 20010103
  6. MANIDIPINE HYDROCHLORIDE [Concomitant]
     Indication: HYPERTENSION
     Route: 048
     Dates: start: 19931201, end: 20010103
  7. MEXILETINE HYDROCHLORIDE [Concomitant]
     Indication: VENTRICULAR ARRHYTHMIA
     Route: 048
     Dates: start: 19950601, end: 20010103
  8. ASPIRIN-DIALUMINATE [Concomitant]
     Indication: CARDIAC DISORDER
     Route: 048
     Dates: start: 19950301, end: 20010103
  9. TERAZOSIN HYDROCHLORIDE [Concomitant]
     Indication: HYPERTENSION
     Route: 048
     Dates: start: 19980401, end: 20010103
  10. ENALAPRIL MALEATE [Concomitant]
     Indication: HYPERTENSION
     Route: 048
     Dates: start: 19980401, end: 20010103
  11. METHYLPREDNISOLONE SODIUM SUCCINATE [Concomitant]
     Indication: ACUTE RESPIRATORY FAILURE
     Route: 048
     Dates: start: 20001231, end: 20001231
  12. CLARITHROMYCIN [Concomitant]
     Indication: PNEUMONIA
     Route: 048
     Dates: start: 20001229, end: 20001231

REACTIONS (6)
  - ANOREXIA [None]
  - ANURIA [None]
  - DYSPNOEA [None]
  - LEFT VENTRICULAR FAILURE [None]
  - RENAL FAILURE ACUTE [None]
  - RESPIRATORY FAILURE [None]
